FAERS Safety Report 10441211 (Version 1)
Quarter: 2014Q3

REPORT INFORMATION
  Report Type: Spontaneous
  Country: US (occurrence: None)
  Receive Date: 20140905
  Receipt Date: 20140905
  Transmission Date: 20150326
  Serious: Yes (Hospitalization, Other)
  Sender: FDA-Public Use
  Company Number: 2014-US-010961

PATIENT
  Age: 55 Year
  Sex: Female
  Weight: 82.5 kg

DRUGS (1)
  1. XYREM [Suspect]
     Active Substance: SODIUM OXYBATE
     Indication: NARCOLEPSY
     Route: 048
     Dates: start: 201404

REACTIONS (4)
  - Loss of consciousness [None]
  - Cardiac ablation [None]
  - Heart rate increased [None]
  - Road traffic accident [None]

NARRATIVE: CASE EVENT DATE: 20140804
